FAERS Safety Report 5362665-X (Version None)
Quarter: 2007Q2

REPORT INFORMATION
  Report Type: 
  Country: None (occurrence: None)
  Receive Date: 20070530
  Receipt Date: 20070212
  Transmission Date: 20071010
  Serious: No
  Sender: FDA-Public Use
  Company Number: 2007PV029972

PATIENT
  Age: 64 Year
  Sex: Female
  Weight: 90.7194 kg

DRUGS (3)
  1. BYETTA [Suspect]
     Indication: DIABETES MELLITUS NON-INSULIN-DEPENDENT
     Dosage: 5 MCG;BID;SC
     Route: 058
     Dates: start: 20070203, end: 20070203
  2. GLIPIZIDE [Concomitant]
  3. METFORMIN HCL [Concomitant]

REACTIONS (9)
  - ANOREXIA [None]
  - DEPRESSED MOOD [None]
  - DISTURBANCE IN ATTENTION [None]
  - EAR DISCOMFORT [None]
  - ENERGY INCREASED [None]
  - HEADACHE [None]
  - MUSCULAR WEAKNESS [None]
  - OCULAR HYPERAEMIA [None]
  - PALLOR [None]
